FAERS Safety Report 24675938 (Version 1)
Quarter: 2024Q4

REPORT INFORMATION
  Report Type: Spontaneous
  Country: CH (occurrence: CH)
  Receive Date: 20241128
  Receipt Date: 20241128
  Transmission Date: 20250114
  Serious: Yes (Other)
  Sender: TEVA
  Company Number: None

PATIENT
  Age: 76 Year
  Sex: Female
  Weight: 64 kg

DRUGS (25)
  1. FENTANYL [Interacting]
     Active Substance: FENTANYL
     Indication: Product used for unknown indication
     Dosage: 25 ?G/ H, FENTANYL MEPHA
     Route: 062
  2. CALCIUM\CHOLECALCIFEROL [Concomitant]
     Active Substance: CALCIUM\CHOLECALCIFEROL
     Indication: Product used for unknown indication
     Dosage: 1000 MG CALCIUM, 800 I.E. CHOLECALCIFEROL PER DOSAGE FORM
     Route: 048
  3. NOVASOURCE GI FORTE [Concomitant]
     Indication: Product used for unknown indication
     Dosage: VIA TUBE; 155 KCAL/ 100 ML
     Route: 065
     Dates: start: 2024
  4. Resource protein [Concomitant]
     Indication: Product used for unknown indication
     Route: 048
  5. Symfona [Concomitant]
     Indication: Product used for unknown indication
     Route: 048
  6. Olfen [Concomitant]
     Indication: Arthralgia
     Dosage: TIME INTERVAL: AS NECESSARY: MAX. 3X/DAY
     Route: 003
  7. AMITRIPTYLINE [Interacting]
     Active Substance: AMITRIPTYLINE
     Indication: Product used for unknown indication
     Route: 065
  8. LEVETIRACETAM [Interacting]
     Active Substance: LEVETIRACETAM
     Indication: Product used for unknown indication
     Dosage: VIA THE FEEDING TUBE
     Route: 065
     Dates: start: 20240829, end: 20240903
  9. VALVERDE SCHLAF [Concomitant]
     Indication: Sleep disorder
     Dosage: TIME INTERVAL: AS NECESSARY
     Route: 048
  10. PANTOPRAZOLE SODIUM [Concomitant]
     Active Substance: PANTOPRAZOLE SODIUM
     Indication: Product used for unknown indication
     Route: 048
  11. Transipeg [Concomitant]
     Indication: Product used for unknown indication
     Route: 048
  12. PROLIA [Concomitant]
     Active Substance: DENOSUMAB
     Indication: Product used for unknown indication
     Dosage: 60 MG DENUSOMAB/ ML
     Route: 058
  13. Imazol [Concomitant]
     Indication: Product used for unknown indication
     Dosage: 10 MG CLOTRIMAZOLE/G
     Route: 003
     Dates: start: 2024
  14. RILUTEK [Concomitant]
     Active Substance: RILUZOLE
     Indication: Product used for unknown indication
     Route: 048
  15. VI DE 3 [Concomitant]
     Indication: Product used for unknown indication
     Dosage: 100 I.U. CHOLECALCIFEROL PER DROP
     Route: 048
     Dates: start: 2024
  16. METAMIZOLE [Concomitant]
     Active Substance: METAMIZOLE
     Indication: Product used for unknown indication
     Dosage: TIME INTERVAL: AS NECESSARY: 500 MG/ML; MAX. 4X 20 DROPS/DAY
     Route: 048
     Dates: start: 2024
  17. NEXIUM [Concomitant]
     Active Substance: ESOMEPRAZOLE MAGNESIUM
     Indication: Product used for unknown indication
     Dosage: VIA TUBE; 40 MG ESOMEPRAZOLE PER 5 ML
     Route: 065
     Dates: start: 2024
  18. XARELTO [Concomitant]
     Active Substance: RIVAROXABAN
     Indication: Product used for unknown indication
     Route: 048
  19. MOTILIUM [Concomitant]
     Active Substance: DOMPERIDONE
     Indication: Nausea
     Dosage: TIME INTERVAL: AS NECESSARY: MAX. 1X/DAY
     Route: 048
  20. Freka Clyss [Concomitant]
     Indication: Constipation
     Dosage: TIME INTERVAL: AS NECESSARY
     Route: 054
  21. SALVIA WILD [Concomitant]
     Indication: Product used for unknown indication
     Route: 048
  22. DAFALGAN [Concomitant]
     Active Substance: ACETAMINOPHEN
     Indication: Product used for unknown indication
     Dosage: TIME INTERVAL: AS NECESSARY: MAX. 4X/DAY
     Route: 065
     Dates: start: 2024
  23. SODIUM PICOSULFATE [Concomitant]
     Active Substance: SODIUM PICOSULFATE
     Indication: Product used for unknown indication
     Route: 048
  24. MAGNESIUM ASPARTATE HYDROCHLORIDE [Concomitant]
     Active Substance: MAGNESIUM ASPARTATE HYDROCHLORIDE
     Indication: Product used for unknown indication
     Dosage: VIA TUBE
     Route: 065
     Dates: start: 2024
  25. OXYCODONE HYDROCHLORIDE [Interacting]
     Active Substance: OXYCODONE HYDROCHLORIDE
     Indication: Pain
     Dosage: TIME INTERVAL: AS NECESSARY: 10 MG OXYCODON/ ML, MAX. 4X 5ML/ DAY
     Route: 048

REACTIONS (1)
  - Delirium [Recovered/Resolved]

NARRATIVE: CASE EVENT DATE: 20240101
